FAERS Safety Report 9527806 (Version 2)
Quarter: 2014Q1

REPORT INFORMATION
  Report Type: Spontaneous
  Country: JP (occurrence: None)
  Receive Date: 20130913
  Receipt Date: 20140304
  Transmission Date: 20141002
  Serious: Yes (Death, Hospitalization, Other)
  Sender: FDA-Public Use
  Company Number: CO-OR-JP-2013-048

PATIENT
  Age: 90 Year
  Sex: Female

DRUGS (1)
  1. PREDNISOLONE [Suspect]
     Indication: POLYARTHRITIS
     Dosage: 5-10 MG/DAY

REACTIONS (7)
  - Phaehyphomycosis [None]
  - Sporotrichosis [None]
  - Respiratory distress [None]
  - Pneumonia [None]
  - Glycosylated haemoglobin increased [None]
  - Hyperthermia [None]
  - Red blood cell count decreased [None]
